FAERS Safety Report 21233706 (Version 2)
Quarter: 2022Q4

REPORT INFORMATION
  Report Type: Spontaneous
  Country: US (occurrence: US)
  Receive Date: 20220819
  Receipt Date: 20221014
  Transmission Date: 20230112
  Serious: No
  Sender: FDA-Public Use
  Company Number: US-LUNDBECK-DKLU3051192

PATIENT
  Sex: Female

DRUGS (2)
  1. VYEPTI [Suspect]
     Active Substance: EPTINEZUMAB-JJMR
     Indication: Product used for unknown indication
     Route: 041
  2. HEPARIN [Suspect]
     Active Substance: HEPARIN SODIUM
     Indication: Catheter management
     Route: 042

REACTIONS (1)
  - Incorrect dose administered [Unknown]
